FAERS Safety Report 11266979 (Version 1)
Quarter: 2015Q3

REPORT INFORMATION
  Report Type: Report from Study
  Country: IL (occurrence: IL)
  Receive Date: 20150713
  Receipt Date: 20150713
  Transmission Date: 20151125
  Serious: Yes (Death, Life-Threatening, Hospitalization, Disabling)
  Sender: FDA-Public Use
  Company Number: IL-AMGEN-ISRCT2015023599

PATIENT
  Age: 61 Year
  Sex: Male
  Weight: 75 kg

DRUGS (14)
  1. CODEINE PHOSPHATE [Concomitant]
     Active Substance: CODEINE PHOSPHATE
     Dosage: 20 TO 80 MG
     Route: 048
     Dates: start: 20150225, end: 20150306
  2. VFEND [Concomitant]
     Active Substance: VORICONAZOLE
     Dosage: 200 TO 800 MG
     Route: 048
     Dates: start: 20150227, end: 20150311
  3. DEXACORT                           /00016001/ [Concomitant]
     Dosage: 4 TO 20 MG
     Route: 042
     Dates: start: 20150226, end: 20150310
  4. VANCOMYCIN [Concomitant]
     Active Substance: VANCOMYCIN
     Dosage: 1 G, UNK
     Route: 042
     Dates: start: 20150216, end: 20150310
  5. ENSURE [Concomitant]
     Active Substance: AMINO ACIDS\DEXTROSE\ELECTROLYTES NOS\SOYBEAN OIL\VITAMINS
     Dosage: 240 ML, UNK
     Route: 048
     Dates: start: 20150225, end: 20150504
  6. ALLOPURINOL. [Concomitant]
     Active Substance: ALLOPURINOL
     Dosage: 100 MG, UNK
     Route: 048
     Dates: start: 20150226, end: 20150304
  7. SLOW K [Concomitant]
     Active Substance: POTASSIUM CHLORIDE
     Dosage: 1200 MG, UNK
     Route: 048
     Dates: start: 20150227, end: 20150306
  8. LOSEC [Concomitant]
     Active Substance: OMEPRAZOLE
     Dosage: 20 MG, UNK
     Route: 048
     Dates: start: 20150126, end: 20150310
  9. CASPOFUNGIN [Concomitant]
     Active Substance: CASPOFUNGIN
     Dosage: 50 MG, UNK
     Route: 042
     Dates: start: 20150215, end: 20150307
  10. BLINATUMOMAB [Suspect]
     Active Substance: BLINATUMOMAB
     Indication: ACUTE LYMPHOCYTIC LEUKAEMIA
     Dosage: 28 MUG, UNK
     Route: 041
     Dates: start: 20150301, end: 20150310
  11. CALCILESS [Concomitant]
     Dosage: 200  TO 400 MG, UNK
     Route: 048
     Dates: start: 20150225, end: 20150309
  12. FUSID                              /00032601/ [Concomitant]
     Dosage: 40 MG, UNK
     Route: 042
     Dates: start: 20150226, end: 20150311
  13. VALTREX [Concomitant]
     Active Substance: VALACYCLOVIR HYDROCHLORIDE
     Dosage: 500 MG, UNK
     Route: 048
     Dates: start: 20150109, end: 20150309
  14. TAZOCIN [Concomitant]
     Active Substance: PIPERACILLIN SODIUM\TAZOBACTAM SODIUM
     Dosage: 4.5 G, UNK
     Route: 042
     Dates: start: 20150111, end: 20150304

REACTIONS (3)
  - Cardiac failure congestive [Not Recovered/Not Resolved]
  - Multi-organ failure [Fatal]
  - Fungaemia [Not Recovered/Not Resolved]

NARRATIVE: CASE EVENT DATE: 20150301
